FAERS Safety Report 14095657 (Version 2)
Quarter: 2017Q4

REPORT INFORMATION
  Report Type: Spontaneous
  Country: JP (occurrence: JP)
  Receive Date: 20171016
  Receipt Date: 20171107
  Transmission Date: 20180321
  Serious: Yes (Other)
  Sender: FDA-Public Use
  Company Number: JP-PFIZER INC-2017438957

PATIENT
  Age: 30 Year
  Sex: Female

DRUGS (3)
  1. ALL-TRANS RETINOIC ACID [Concomitant]
     Active Substance: TRETINOIN
     Indication: ACUTE PROMYELOCYTIC LEUKAEMIA
     Dosage: 80 MG, DAILY (DAY 1)
  2. DEXAMETHASONE. [Concomitant]
     Active Substance: DEXAMETHASONE
     Dosage: 20 MG, DAILY
  3. IDARUBICIN HCL [Suspect]
     Active Substance: IDARUBICIN HYDROCHLORIDE
     Indication: ACUTE PROMYELOCYTIC LEUKAEMIA
     Dosage: 20 MG, DAILY (CONCOMITANTLY ADMINISTERED ON DAYS 2, 4, AND 5)

REACTIONS (1)
  - Foetal death [Unknown]
